FAERS Safety Report 7656571-5 (Version None)
Quarter: 2011Q3

REPORT INFORMATION
  Report Type: 
  Country: None (occurrence: None)
  Receive Date: 20110804
  Receipt Date: 20110628
  Transmission Date: 20111222
  Serious: No
  Sender: FDA-Public Use
  Company Number: US-BAUSCH-2011BL001756

PATIENT
  Age: 50 Year
  Sex: Female

DRUGS (9)
  1. CLONAZEPAM [Concomitant]
     Indication: MENTAL DISORDER
     Route: 048
  2. ASPIRIN [Concomitant]
     Indication: PRODUCT USED FOR UNKNOWN INDICATION
     Route: 048
  3. CELEXA [Concomitant]
     Indication: MENTAL DISORDER
     Route: 048
  4. OPCON-A [Suspect]
     Indication: EYE ALLERGY
     Route: 047
     Dates: start: 20110218, end: 20110224
  5. OPCON-A [Suspect]
     Indication: EYE PRURITUS
     Route: 047
     Dates: start: 20110218, end: 20110224
  6. DIOVAN [Concomitant]
     Indication: HYPERTENSION
     Route: 048
  7. ZOCOR [Concomitant]
     Indication: BLOOD CHOLESTEROL INCREASED
     Route: 048
  8. FISH OIL [Concomitant]
     Indication: MEDICAL DIET
     Route: 048
  9. MULTI-VITAMINS [Concomitant]
     Indication: VITAMIN SUPPLEMENTATION
     Route: 048

REACTIONS (5)
  - CONJUNCTIVAL OEDEMA [None]
  - EYELID OEDEMA [None]
  - CONJUNCTIVAL HAEMORRHAGE [None]
  - EYE PAIN [None]
  - PINGUECULA [None]
